FAERS Safety Report 12949728 (Version 7)
Quarter: 2018Q1

REPORT INFORMATION
  Report Type: Spontaneous
  Country: BR (occurrence: BR)
  Receive Date: 20161116
  Receipt Date: 20180130
  Transmission Date: 20180508
  Serious: Yes (Other)
  Sender: FDA-Public Use
  Company Number: BR-PFIZER INC-2016458098

PATIENT
  Age: 28 Year
  Sex: Male

DRUGS (5)
  1. FRONTAL [Suspect]
     Active Substance: ALPRAZOLAM
     Indication: PANIC DISORDER
     Dosage: 2 MG, DAILY (AT NIGHT)
     Dates: start: 20171106, end: 20171107
  2. FRONTAL [Suspect]
     Active Substance: ALPRAZOLAM
     Dosage: 2 MG, DAILY (AT NIGHT)
     Dates: start: 20171108, end: 20171110
  3. FRONTAL XR [Suspect]
     Active Substance: ALPRAZOLAM
     Dosage: UNK
     Dates: start: 201609
  4. FRONTAL [Suspect]
     Active Substance: ALPRAZOLAM
     Indication: ANXIETY
     Dosage: UNK
     Route: 048
     Dates: start: 201608
  5. SERTRALINE [Concomitant]
     Active Substance: SERTRALINE HYDROCHLORIDE
     Dosage: UNK

REACTIONS (14)
  - Anxiety [Recovered/Resolved]
  - Poor quality drug administered [Not Recovered/Not Resolved]
  - Headache [Recovered/Resolved]
  - Intentional overdose [Recovered/Resolved]
  - Fear [Unknown]
  - Expired product administered [Not Recovered/Not Resolved]
  - Condition aggravated [Recovered/Resolved]
  - Nervousness [Unknown]
  - Insomnia [Recovered/Resolved]
  - Product colour issue [Not Recovered/Not Resolved]
  - Drug ineffective [Not Recovered/Not Resolved]
  - Dyspnoea [Unknown]
  - Homicidal ideation [Unknown]
  - Feeling of despair [Unknown]

NARRATIVE: CASE EVENT DATE: 20161108
